FAERS Safety Report 4718404-6 (Version None)
Quarter: 2005Q3

REPORT INFORMATION
  Report Type: 
  Country: None (occurrence: None)
  Receive Date: 20050720
  Receipt Date: 20050210
  Transmission Date: 20060218
  Serious: Yes (Death, Hospitalization)
  Sender: FDA-Public Use
  Company Number: 2005CG00320

PATIENT
  Age: 36 Year
  Sex: Male

DRUGS (6)
  1. FOSCAVIR [Suspect]
     Route: 042
     Dates: start: 20050103
  2. CANCIDAS [Suspect]
     Route: 042
     Dates: start: 20041229, end: 20050111
  3. TIENAM [Suspect]
     Dosage: 500 + 500 MG BID
     Route: 042
     Dates: start: 20050103, end: 20050111
  4. BACTRIM [Suspect]
     Route: 042
     Dates: start: 20050103, end: 20050110
  5. BACTRIM [Suspect]
     Route: 042
     Dates: start: 20050110, end: 20050112
  6. VANCOMYCIN [Suspect]
     Route: 042
     Dates: start: 20050103, end: 20050112

REACTIONS (3)
  - COAGULOPATHY [None]
  - HEPATITIS CHOLESTATIC [None]
  - MULTI-ORGAN FAILURE [None]
